FAERS Safety Report 9206985 (Version 1)
Quarter: 2013Q1

REPORT INFORMATION
  Report Type: Spontaneous
  Country: US (occurrence: None)
  Receive Date: 20120713
  Receipt Date: 20120713
  Transmission Date: 20140127
  Serious: Yes (Other)
  Sender: FDA-Public Use
  Company Number: 2011BH016142

PATIENT
  Age: 62 Year
  Sex: Female
  Weight: 126.1 kg

DRUGS (3)
  1. CYTOXAN [Suspect]
     Indication: BREAST CANCER
     Route: 042
     Dates: start: 2010, end: 20101110
  2. TAXOTERE (DOCETAXEL) [Suspect]
     Indication: BREAST CANCER
     Dosage: (UNK) M IVDRP
     Route: 041
     Dates: start: 2010, end: 2010
  3. DOXORUBICIN [Suspect]
     Indication: BREAST CANCER
     Dosage: (UNK), IV
     Route: 042
     Dates: start: 2010, end: 2010

REACTIONS (1)
  - Pulmonary toxicity [None]
